FAERS Safety Report 7909182-8 (Version None)
Quarter: 2011Q4

REPORT INFORMATION
  Report Type: 
  Country: None (occurrence: None)
  Receive Date: 20111111
  Receipt Date: 20110609
  Transmission Date: 20120403
  Serious: No
  Sender: FDA-Public Use
  Company Number: US-GLAXOSMITHKLINE-A0930939A

PATIENT
  Age: 63 Year
  Sex: Male

DRUGS (6)
  1. COREG [Suspect]
     Indication: HYPERTENSION
     Dosage: 3.125MG PER DAY
     Route: 048
     Dates: start: 20110301, end: 20110501
  2. ASPIRIN [Concomitant]
  3. HYDROCHLOROTHIAZIDE [Concomitant]
  4. PLAVIX [Concomitant]
  5. LIPITOR [Concomitant]
  6. RANITIDINE [Concomitant]

REACTIONS (6)
  - DYSPNOEA [None]
  - SKIN LESION [None]
  - HYPOTENSION [None]
  - DIZZINESS [None]
  - FATIGUE [None]
  - CHEST DISCOMFORT [None]
